FAERS Safety Report 7254234-1 (Version None)
Quarter: 2011Q1

REPORT INFORMATION
  Report Type: 
  Country: None (occurrence: None)
  Receive Date: 20110129
  Receipt Date: 20100301
  Transmission Date: 20110831
  Serious: No
  Sender: FDA-Public Use
  Company Number: US-ABBOTT-09P-163-0599169-00

PATIENT
  Sex: Male
  Weight: 89.438 kg

DRUGS (4)
  1. FOLIC ACID [Concomitant]
     Indication: SUPPLEMENTATION THERAPY
  2. TRENTAL [Concomitant]
     Indication: CAPILLARY DISORDER
     Route: 048
  3. HUMIRA [Suspect]
     Indication: RHEUMATOID ARTHRITIS
     Route: 058
     Dates: start: 20080401
  4. METHOTREXATE [Concomitant]
     Indication: RHEUMATOID ARTHRITIS
     Route: 048

REACTIONS (6)
  - PRURITUS [None]
  - RASH MACULAR [None]
  - RASH [None]
  - PHOTOSENSITIVITY REACTION [None]
  - SKIN LESION [None]
  - SKIN EXFOLIATION [None]
